FAERS Safety Report 21415169 (Version 1)
Quarter: 2022Q4

REPORT INFORMATION
  Report Type: Spontaneous
  Country: US (occurrence: US)
  Receive Date: 20221006
  Receipt Date: 20221006
  Transmission Date: 20230112
  Serious: Yes (Death, Other)
  Sender: FDA-Public Use
  Company Number: US-SA-SAC20221004000935

PATIENT
  Age: 68 Year
  Sex: Male

DRUGS (1)
  1. ZANTAC [Suspect]
     Active Substance: RANITIDINE HYDROCHLORIDE
     Dosage: UNKNOWN AT THIS TIME,QD
     Dates: start: 200601, end: 202006

REACTIONS (3)
  - Hepatic cancer stage IV [Fatal]
  - Pancreatic carcinoma stage IV [Fatal]
  - Prostate cancer stage IV [Fatal]

NARRATIVE: CASE EVENT DATE: 20170901
